FAERS Safety Report 18500403 (Version 1)
Quarter: 2020Q4

REPORT INFORMATION
  Report Type: Spontaneous
  Country: US (occurrence: US)
  Receive Date: 20201112
  Receipt Date: 20201112
  Transmission Date: 20210114
  Serious: Yes (Death, Life-Threatening, Hospitalization)
  Sender: FDA-Public Use
  Company Number: None

PATIENT
  Age: 77 Year
  Sex: Male
  Weight: 65 kg

DRUGS (21)
  1. ALBUMIN HUMAN 5% IVPB [Concomitant]
     Dates: start: 20201017, end: 20201017
  2. DEXAMETHASONE 10MG/ML [Concomitant]
     Active Substance: DEXAMETHASONE SODIUM PHOSPHATE
     Dates: start: 20201004, end: 20201010
  3. POLYETHYLENE GLYCOL 3350 17G [Concomitant]
     Dates: start: 20201004, end: 20201017
  4. DOBUTAMINE 500MG IN DEXTROSE 250ML [Concomitant]
     Dates: start: 20201017, end: 20201017
  5. OXYCODONE 5MG IR PRN [Concomitant]
     Dates: start: 20201004, end: 20201016
  6. ENOXAPARIN 40MG INJECTION [Concomitant]
     Dates: start: 20201004, end: 20201013
  7. FENTANYL 50MCG/ML PRN INJECTION [Concomitant]
     Dates: start: 20201004, end: 20201015
  8. TAMSULOSIN 0.8MG [Concomitant]
     Dates: start: 20201004, end: 20201017
  9. VITAMIN D3 1000UNITS [Concomitant]
     Dates: start: 20201004, end: 20201017
  10. REMDESIVIR. [Suspect]
     Active Substance: REMDESIVIR
     Indication: COVID-19 PNEUMONIA
     Dosage: ?          OTHER FREQUENCY:200MGX1,100MG/D X4;?
     Route: 042
     Dates: start: 20201006, end: 20201010
  11. ADVAIR HFA [Concomitant]
     Active Substance: FLUTICASONE PROPIONATE\SALMETEROL XINAFOATE
     Dates: start: 20201004, end: 20201013
  12. AMIODARONE 200MG [Concomitant]
     Active Substance: AMIODARONE
     Dates: start: 20201004, end: 20201017
  13. TRAMADOL 50MG [Concomitant]
     Active Substance: TRAMADOL
     Dates: start: 20201004, end: 20201015
  14. ATORVASTATIN 10MG [Concomitant]
     Active Substance: ATORVASTATIN
     Dates: start: 20201004, end: 20201016
  15. DEXMEDETIMIDINE 4MCG/ML [Concomitant]
     Dates: start: 20201013, end: 20201015
  16. ASPIRIN 81MG EC [Concomitant]
     Dates: start: 20201005, end: 20201015
  17. AZITHROMYCIN 500MG [Concomitant]
     Active Substance: AZITHROMYCIN
     Dates: start: 20201004, end: 20201008
  18. METOPROLOL TARTRATE 25MG [Concomitant]
     Active Substance: METOPROLOL TARTRATE
     Dates: start: 20201004, end: 20201017
  19. AMLODIPINE [Concomitant]
     Active Substance: AMLODIPINE BESYLATE
     Dates: start: 20201004, end: 20201017
  20. VELETRI 30MCG/ML [Concomitant]
     Dates: start: 20201017, end: 20201017
  21. ZINC SULFATE 220MG [Concomitant]
     Dates: start: 20201005, end: 20201017

REACTIONS (4)
  - Acute myocardial infarction [None]
  - Cardiac arrest [None]
  - Blood bilirubin increased [None]
  - Pulseless electrical activity [None]

NARRATIVE: CASE EVENT DATE: 20201006
